FAERS Safety Report 17035188 (Version 1)
Quarter: 2019Q4

REPORT INFORMATION
  Report Type: Report from Study
  Country: DE (occurrence: DE)
  Receive Date: 20191115
  Receipt Date: 20191115
  Transmission Date: 20200122
  Serious: Yes (Other)
  Sender: FDA-Public Use
  Company Number: DE-BRISTOL-MYERS SQUIBB COMPANY-BMS-2019-098946

PATIENT
  Age: 81 Year
  Sex: Female

DRUGS (2)
  1. IPILIMUMAB [Suspect]
     Active Substance: IPILIMUMAB
     Indication: RENAL CELL CARCINOMA
     Dosage: 1 MILLIGRAM/KILOGRAM, BODY WEIGHT
     Route: 042
     Dates: start: 20190404
  2. NIVOLUMAB [Suspect]
     Active Substance: NIVOLUMAB
     Indication: RENAL CELL CARCINOMA
     Dosage: 3 MILLIGRAM/KILOGRAM, BODY WEIGHT
     Route: 042
     Dates: start: 20190404

REACTIONS (9)
  - Pain [Recovering/Resolving]
  - Asthenia [Unknown]
  - Dysgeusia [Unknown]
  - Dyspnoea [Recovering/Resolving]
  - Blood lactate dehydrogenase increased [Recovering/Resolving]
  - Cardiovascular disorder [Unknown]
  - Decreased appetite [Recovering/Resolving]
  - Fatigue [Recovering/Resolving]
  - Limb discomfort [Unknown]

NARRATIVE: CASE EVENT DATE: 20190404
